FAERS Safety Report 24857403 (Version 2)
Quarter: 2025Q1

REPORT INFORMATION
  Report Type: Spontaneous
  Country: IT (occurrence: IT)
  Receive Date: 20250117
  Receipt Date: 20250129
  Transmission Date: 20250408
  Serious: Yes (Hospitalization)
  Sender: BIOMARIN
  Company Number: IT-BIOMARINAP-IT-2025-163134

PATIENT

DRUGS (1)
  1. VIMIZIM [Suspect]
     Active Substance: ELOSULFASE ALFA
     Indication: Product used for unknown indication
     Dosage: UNK, QW
     Route: 042

REACTIONS (7)
  - Pneumonia [Recovering/Resolving]
  - Dyspnoea [Recovering/Resolving]
  - Cough [Not Recovered/Not Resolved]
  - Pyrexia [Recovering/Resolving]
  - Asthenia [Recovering/Resolving]
  - Decreased appetite [Recovering/Resolving]
  - Gastrointestinal disorder [Recovering/Resolving]

NARRATIVE: CASE EVENT DATE: 20250108
